FAERS Safety Report 15353878 (Version 12)
Quarter: 2021Q4

REPORT INFORMATION
  Report Type: Spontaneous
  Country: US (occurrence: US)
  Receive Date: 20180905
  Receipt Date: 20211124
  Transmission Date: 20220304
  Serious: Yes (Hospitalization, Other)
  Sender: FDA-Public Use
  Company Number: US-VIFOR (INTERNATIONAL) INC.-VIT-2018-08664

PATIENT
  Age: 56 Year
  Sex: Female

DRUGS (15)
  1. VELTASSA [Suspect]
     Active Substance: PATIROMER
     Indication: Hyperkalaemia
     Route: 048
     Dates: start: 20160722
  2. VELTASSA [Suspect]
     Active Substance: PATIROMER
     Dosage: 2 PACKETS
     Route: 048
  3. VELTASSA [Suspect]
     Active Substance: PATIROMER
     Route: 048
  4. MIRALAX [Concomitant]
     Active Substance: POLYETHYLENE GLYCOL 3350
  5. CHOLECALCIFEROL [Concomitant]
     Active Substance: CHOLECALCIFEROL
  6. DEPAKOTE [Concomitant]
     Active Substance: DIVALPROEX SODIUM
  7. WELLBUTRIN [Concomitant]
     Active Substance: BUPROPION HYDROCHLORIDE
  8. RISPERDAL [Concomitant]
     Active Substance: RISPERIDONE
  9. FUROSEMIDE [Concomitant]
     Active Substance: FUROSEMIDE
  10. METOPROLOL TARTRATE [Concomitant]
     Active Substance: METOPROLOL TARTRATE
  11. NEXIUM [Concomitant]
     Active Substance: ESOMEPRAZOLE MAGNESIUM
  12. XARELTO [Concomitant]
     Active Substance: RIVAROXABAN
  13. NEURONTIN [Concomitant]
     Active Substance: GABAPENTIN
  14. CALCIUM [Concomitant]
     Active Substance: CALCIUM
  15. ACETAMINOPHEN\HYDROCODONE [Concomitant]
     Active Substance: ACETAMINOPHEN\HYDROCODONE

REACTIONS (18)
  - Hospitalisation [Unknown]
  - Haemorrhoids [Unknown]
  - Internal haemorrhage [Unknown]
  - Cerebrovascular accident [Unknown]
  - Knee operation [Unknown]
  - Nephrolithiasis [Not Recovered/Not Resolved]
  - Sepsis [Unknown]
  - Cholecystectomy [Unknown]
  - Laboratory test abnormal [Unknown]
  - Fall [Not Recovered/Not Resolved]
  - Back injury [Not Recovered/Not Resolved]
  - Lower limb fracture [Unknown]
  - Mastitis [Unknown]
  - Sinusitis [Unknown]
  - Migraine [Unknown]
  - Blood potassium increased [Unknown]
  - Off label use [Unknown]
  - Overdose [Unknown]

NARRATIVE: CASE EVENT DATE: 20200101
